FAERS Safety Report 24141884 (Version 1)
Quarter: 2024Q3

REPORT INFORMATION
  Report Type: Spontaneous
  Country: FR (occurrence: FR)
  Receive Date: 20240726
  Receipt Date: 20240726
  Transmission Date: 20241017
  Serious: Yes (Death)
  Sender: RANBAXY
  Company Number: FR-SUN PHARMACEUTICAL INDUSTRIES LTD-2024RR-459402

PATIENT
  Sex: Female
  Weight: 1.038 kg

DRUGS (25)
  1. NOREPINEPHRINE [Suspect]
     Active Substance: NOREPINEPHRINE\NOREPINEPHRINE BITARTRATE
     Indication: General anaesthesia
     Dosage: 463 MICROGRAM
     Route: 065
     Dates: start: 20230425, end: 20230425
  2. MIDAZOLAM [Suspect]
     Active Substance: MIDAZOLAM
     Indication: General anaesthesia
     Dosage: 1 MILLIGRAM
     Route: 065
     Dates: start: 20230425, end: 20230425
  3. ATROPINE [Suspect]
     Active Substance: ATROPINE
     Indication: General anaesthesia
     Dosage: 1 MILLIGRAM
     Route: 040
     Dates: start: 20230425, end: 20230425
  4. VISIPAQUE [Suspect]
     Active Substance: IODIXANOL
     Indication: General anaesthesia
     Dosage: 60 MILLILITER
     Route: 065
     Dates: start: 20230425, end: 20230425
  5. ACETAMINOPHEN [Suspect]
     Active Substance: ACETAMINOPHEN
     Indication: General anaesthesia
     Dosage: 1 GRAM
     Route: 040
     Dates: start: 20230425, end: 20230425
  6. SUFENTANIL [Suspect]
     Active Substance: SUFENTANIL
     Indication: General anaesthesia
     Dosage: 15 MICROGRAM
     Route: 065
     Dates: start: 20230425, end: 20230425
  7. SUCCINYLCHOLINE [Suspect]
     Active Substance: SUCCINYLCHOLINE
     Indication: General anaesthesia
     Dosage: 60 MILLIGRAM
     Route: 065
     Dates: start: 20230425, end: 20230425
  8. PROPOFOL [Suspect]
     Active Substance: PROPOFOL
     Indication: General anaesthesia
     Dosage: 150 MILLIGRAM
     Route: 065
     Dates: start: 20230425, end: 20230425
  9. LIDOCAINE [Suspect]
     Active Substance: LIDOCAINE
     Indication: General anaesthesia
     Dosage: 60 MILLIGRAM
     Route: 065
     Dates: start: 20230425, end: 20230425
  10. ATRACURIUM [Suspect]
     Active Substance: ATRACURIUM
     Indication: General anaesthesia
     Dosage: 45 MILLIGRAM
     Route: 065
     Dates: start: 20230425, end: 20230425
  11. MAGNESIUM [Suspect]
     Active Substance: MAGNESIUM
     Indication: General anaesthesia
     Dosage: 3 GRAM
     Route: 065
     Dates: start: 20230425, end: 20230425
  12. NEFOPAM [Suspect]
     Active Substance: NEFOPAM
     Indication: General anaesthesia
     Dosage: 20 MILLIGRAM
     Route: 065
     Dates: start: 20230425, end: 20230425
  13. KETAMINE [Suspect]
     Active Substance: KETAMINE
     Indication: General anaesthesia
     Dosage: 70 MILLIGRAM
     Route: 065
     Dates: start: 20230425, end: 20230425
  14. AUGMENTIN [Suspect]
     Active Substance: AMOXICILLIN\CLAVULANATE POTASSIUM
     Indication: General anaesthesia
     Dosage: 2 GRAM
     Route: 065
     Dates: start: 20230425, end: 20230425
  15. OXYCODONE [Suspect]
     Active Substance: OXYCODONE
     Indication: General anaesthesia
     Dosage: 4 MILLIGRAM
     Route: 065
     Dates: start: 20230425, end: 20230425
  16. CLONIDINE [Suspect]
     Active Substance: CLONIDINE
     Indication: General anaesthesia
     Dosage: 75 MICROGRAM
     Route: 065
     Dates: start: 20230425, end: 20230425
  17. NEOSTIGMINE [Suspect]
     Active Substance: NEOSTIGMINE
     Indication: General anaesthesia
     Dosage: 2.5 MILLIGRAM
     Route: 065
     Dates: start: 20230425, end: 20230425
  18. FERINJECT [Concomitant]
     Active Substance: FERRIC CARBOXYMALTOSE
     Indication: Product used for unknown indication
     Dosage: UNK
     Route: 065
  19. LEVOTHYROXINE [Concomitant]
     Active Substance: LEVOTHYROXINE\LEVOTHYROXINE SODIUM
     Indication: Product used for unknown indication
     Dosage: UNK
     Route: 065
  20. LANSOPRAZOLE [Concomitant]
     Active Substance: LANSOPRAZOLE
     Indication: Product used for unknown indication
     Dosage: UNK
     Route: 065
  21. NOVORAPID [Concomitant]
     Active Substance: INSULIN ASPART
     Indication: Product used for unknown indication
     Dosage: UNK
     Route: 065
  22. ENOXAPARIN [Concomitant]
     Active Substance: ENOXAPARIN
     Indication: Product used for unknown indication
     Dosage: UNK
     Route: 065
  23. TRIMEBUTINE [Concomitant]
     Active Substance: TRIMEBUTINE
     Indication: Product used for unknown indication
     Dosage: UNK
     Route: 065
  24. PHLOROGLUCINOL [Concomitant]
     Active Substance: PHLOROGLUCINOL
     Indication: Product used for unknown indication
     Dosage: UNK
     Route: 065
  25. INNOHEP [Concomitant]
     Active Substance: TINZAPARIN SODIUM
     Indication: Product used for unknown indication
     Dosage: UNK
     Route: 065

REACTIONS (3)
  - Abortion induced [Fatal]
  - Cerebral haemorrhage foetal [Fatal]
  - Schizencephaly [Fatal]

NARRATIVE: CASE EVENT DATE: 20230613
